FAERS Safety Report 5533964-3 (Version None)
Quarter: 2007Q4

REPORT INFORMATION
  Report Type: 
  Country: None (occurrence: None)
  Receive Date: 20071129
  Receipt Date: 20071120
  Transmission Date: 20080405
  Serious: Yes (Other)
  Sender: FDA-Public Use
  Company Number: 2007SP023367

PATIENT
  Age: 32 Year
  Sex: Female

DRUGS (2)
  1. NASONEX [Suspect]
     Indication: PHARYNGITIS
     Dates: start: 20071019, end: 20071019
  2. IBUPROFEN [Suspect]
     Indication: PHARYNGITIS
     Dosage: 1 DF; QD; PO
     Route: 048
     Dates: start: 20071019, end: 20071019

REACTIONS (2)
  - DYSPNOEA [None]
  - THROAT TIGHTNESS [None]
